FAERS Safety Report 9313248 (Version 1)
Quarter: 2013Q2

REPORT INFORMATION
  Report Type: Spontaneous
  Country: JP (occurrence: JP)
  Receive Date: 20130528
  Receipt Date: 20130528
  Transmission Date: 20140414
  Serious: Yes (Hospitalization)
  Sender: FDA-Public Use
  Company Number: PHHY2013JP025773

PATIENT
  Age: 52 Year
  Sex: Male
  Weight: 78 kg

DRUGS (10)
  1. TEGRETOL [Suspect]
     Indication: MANIA
     Dosage: 400 MG, DAILY
     Route: 048
     Dates: start: 20121009, end: 20121110
  2. RANITIDINE [Suspect]
     Dosage: 75 MG, DAILY
     Route: 048
     Dates: start: 20121109, end: 20121110
  3. IBUPROFEN SANDOZ [Suspect]
     Dosage: UNK UKN, UNK
     Route: 048
     Dates: start: 20121026, end: 20121110
  4. TETRAMIDE [Concomitant]
     Dosage: 10 MG, UNK
     Route: 048
     Dates: end: 20121110
  5. BROTIZOLAM [Concomitant]
     Dosage: 0.50 MG, UNK
     Route: 048
     Dates: end: 20121110
  6. LITHIUM CARBONATE [Concomitant]
     Dosage: 800 MG, UNK
     Route: 048
     Dates: end: 20121110
  7. ESCITALOPRAM OXALATE [Concomitant]
     Dosage: 10 MG, UNK
     Route: 048
     Dates: end: 20121110
  8. BLONANSERIN [Concomitant]
     Dosage: 2 MG, UNK
     Route: 048
     Dates: end: 20121110
  9. BIPERIDEN HYDROCHLORIDE [Concomitant]
     Dosage: 2 MG, UNK
     Route: 048
     Dates: end: 20121110
  10. DIAZEPAM [Concomitant]
     Dosage: UNK UKN, UNK
     Route: 048
     Dates: end: 20121110

REACTIONS (21)
  - Stevens-Johnson syndrome [Recovering/Resolving]
  - Erythema multiforme [Recovered/Resolved]
  - Nasopharyngitis [Unknown]
  - Cervix disorder [Unknown]
  - Conjunctival hyperaemia [Recovering/Resolving]
  - Pruritus [Recovering/Resolving]
  - Erythema [Recovering/Resolving]
  - Laryngeal discomfort [Unknown]
  - Drug eruption [Recovering/Resolving]
  - Pyrexia [Unknown]
  - Epidermal necrosis [Recovering/Resolving]
  - Keratitis [Recovering/Resolving]
  - Hepatic function abnormal [Recovered/Resolved]
  - Gastritis [Unknown]
  - Malaise [Unknown]
  - Feeling hot [Unknown]
  - Toxic skin eruption [Unknown]
  - Skin discolouration [Unknown]
  - Skin lesion [Unknown]
  - Infection [Unknown]
  - Lymphocyte stimulation test positive [Unknown]
